FAERS Safety Report 11528187 (Version 2)
Quarter: 2019Q4

REPORT INFORMATION
  Report Type: Spontaneous
  Country: US (occurrence: US)
  Receive Date: 20150921
  Receipt Date: 20191001
  Transmission Date: 20200122
  Serious: No
  Sender: FDA-Public Use
  Company Number: US-TEVA-563347USA

PATIENT
  Sex: Male

DRUGS (2)
  1. CARBAMAZEPINE TEVA [Suspect]
     Active Substance: CARBAMAZEPINE
  2. CARBAMAZEPINE TEVA [Suspect]
     Active Substance: CARBAMAZEPINE
     Indication: HEADACHE
     Dosage: 400 MILLIGRAM DAILY;
     Route: 048

REACTIONS (3)
  - Dysphonia [Recovered/Resolved]
  - Product physical issue [Unknown]
  - Sneezing [Recovered/Resolved]
